FAERS Safety Report 7484839-4 (Version None)
Quarter: 2011Q2

REPORT INFORMATION
  Report Type: 
  Country: None (occurrence: None)
  Receive Date: 20110517
  Receipt Date: 20100402
  Transmission Date: 20111010
  Serious: Yes (Hospitalization, Other)
  Sender: FDA-Public Use
  Company Number: US-BAYER-201019765NA

PATIENT
  Age: 22 Year
  Sex: Female
  Weight: 113.38 kg

DRUGS (5)
  1. YASMIN [Suspect]
     Indication: ACNE
     Route: 048
  2. ORTHO TRI-CYCLEN LO [Concomitant]
     Indication: CONTRACEPTION
     Dosage: UNK
     Dates: start: 20080221, end: 20080701
  3. DROSPIRENONE AND ETHINYL ESTRADIOL [Suspect]
     Indication: ACNE
     Route: 048
  4. ORTHO TRI-CYCLEN LO [Concomitant]
     Dates: start: 20090629
  5. YAZ [Suspect]
     Indication: ACNE
     Dosage: UNK
     Route: 048

REACTIONS (7)
  - CHOLECYSTITIS ACUTE [None]
  - VOMITING [None]
  - CHOLELITHIASIS [None]
  - ABDOMINAL PAIN [None]
  - NAUSEA [None]
  - CHOLESTEROSIS [None]
  - CHOLECYSTITIS CHRONIC [None]
